FAERS Safety Report 13953905 (Version 1)
Quarter: 2017Q3

REPORT INFORMATION
  Report Type: Spontaneous
  Country: US (occurrence: US)
  Receive Date: 20170911
  Receipt Date: 20170911
  Transmission Date: 20171128
  Serious: No
  Sender: FDA-Public Use
  Company Number: US-TEVA-752092ACC

PATIENT
  Age: 28 Year
  Sex: Female
  Weight: 72.57 kg

DRUGS (2)
  1. KLONOPIN [Concomitant]
     Indication: ANXIETY
     Dosage: 2 MILLIGRAM DAILY; HAS TAKEN THIS FOR SEVERAL YEARS
     Route: 048
  2. VENLAFAXINE [Suspect]
     Active Substance: VENLAFAXINE HYDROCHLORIDE
     Indication: DEPRESSED MOOD
     Dosage: 75 MILLIGRAM DAILY;
     Route: 048
     Dates: start: 20170203

REACTIONS (1)
  - Amphetamines positive [Unknown]

NARRATIVE: CASE EVENT DATE: 20170203
